FAERS Safety Report 17952572 (Version 2)
Quarter: 2020Q3

REPORT INFORMATION
  Report Type: Report from Study
  Country: US (occurrence: US)
  Receive Date: 20200626
  Receipt Date: 20200730
  Transmission Date: 20201103
  Serious: No
  Sender: FDA-Public Use
  Company Number: NVSC2020US181165

PATIENT
  Age: 66 Year
  Sex: Male

DRUGS (1)
  1. LIFITEGRAST [Suspect]
     Active Substance: LIFITEGRAST
     Indication: DRY EYE
     Dosage: UNK UNK, BID (1DROP EACH EYE)
     Route: 065

REACTIONS (1)
  - Overdose [Unknown]
